FAERS Safety Report 8466121-1 (Version None)
Quarter: 2012Q2

REPORT INFORMATION
  Report Type: 
  Country: None (occurrence: None)
  Receive Date: 20120620
  Receipt Date: 20120620
  Transmission Date: 20120825
  Serious: Yes (Disabling, Other)
  Sender: FDA-Public Use
  Company Number: None

PATIENT
  Sex: Female

DRUGS (2)
  1. LIPITOR [Suspect]
     Indication: BLOOD CHOLESTEROL INCREASED
     Dosage: 40MG ONCE A DAY PO
     Route: 048
  2. CYMBALTA [Suspect]
     Indication: DEPRESSION
     Dosage: 30MG 3 TIMES A DAY PO
     Route: 048
     Dates: start: 20100401, end: 20100421

REACTIONS (6)
  - PAIN IN EXTREMITY [None]
  - SYNCOPE [None]
  - PALPITATIONS [None]
  - SWOLLEN TONGUE [None]
  - STOMATITIS [None]
  - BLISTER [None]
